FAERS Safety Report 5648603-0 (Version None)
Quarter: 2008Q1

REPORT INFORMATION
  Report Type: 
  Country: None (occurrence: None)
  Receive Date: 20080303
  Receipt Date: 20080303
  Transmission Date: 20080703
  Serious: No
  Sender: FDA-Public Use
  Company Number: None

PATIENT
  Age: 48 Year
  Sex: Male
  Weight: 53.5244 kg

DRUGS (2)
  1. GADOLINIUM DON'T KNOW [Suspect]
     Indication: NUCLEAR MAGNETIC RESONANCE IMAGING
     Dates: start: 20071101, end: 20071101
  2. GADOLINIUM DON'T KNOW [Suspect]
     Indication: NUCLEAR MAGNETIC RESONANCE IMAGING
     Dates: start: 20080222, end: 20080222

REACTIONS (3)
  - HERPES ZOSTER [None]
  - PARAESTHESIA [None]
  - PRURITUS [None]
